FAERS Safety Report 5480317-2 (Version None)
Quarter: 2007Q3

REPORT INFORMATION
  Report Type: 
  Country: None (occurrence: None)
  Receive Date: 20070913
  Receipt Date: 20060731
  Transmission Date: 20080115
  Serious: Yes (Other)
  Sender: FDA-Public Use
  Company Number: PHEH2006US02604

PATIENT
  Age: 56 Year
  Sex: Female
  Weight: 59.9 kg

DRUGS (5)
  1. DIOVAN [Suspect]
     Indication: HYPERTENSION
     Dosage: 80MG, QD, ORAL 40 MG, QD 20 MG, QD, ORAL 10 MG, QD, ORAL
     Route: 048
     Dates: start: 20060207, end: 20060214
  2. DIOVAN [Suspect]
     Indication: HYPERTENSION
     Dosage: 80MG, QD, ORAL 40 MG, QD 20 MG, QD, ORAL 10 MG, QD, ORAL
     Route: 048
     Dates: start: 20060215, end: 20060220
  3. DIOVAN [Suspect]
     Indication: HYPERTENSION
     Dosage: 80MG, QD, ORAL 40 MG, QD 20 MG, QD, ORAL 10 MG, QD, ORAL
     Route: 048
     Dates: start: 20050926, end: 20060228
  4. DIOVAN [Suspect]
     Indication: HYPERTENSION
     Dosage: 80MG, QD, ORAL 40 MG, QD 20 MG, QD, ORAL 10 MG, QD, ORAL
     Route: 048
     Dates: start: 20051001
  5. ZYRTEC [Concomitant]

REACTIONS (5)
  - BLOOD PRESSURE DECREASED [None]
  - FEELING ABNORMAL [None]
  - INSOMNIA [None]
  - PRURITUS GENERALISED [None]
  - RASH MACULAR [None]
